FAERS Safety Report 16261950 (Version 2)
Quarter: 2019Q2

REPORT INFORMATION
  Report Type: Spontaneous
  Country: CH (occurrence: CH)
  Receive Date: 20190501
  Receipt Date: 20190506
  Transmission Date: 20190711
  Serious: Yes (Death, Hospitalization, Congenital Anomaly, Other)
  Sender: FDA-Public Use
  Company Number: CH-MYLANLABS-2019M1042209

PATIENT
  Age: 0 Year
  Sex: Male
  Weight: .84 kg

DRUGS (8)
  1. QUETIAPINE. [Suspect]
     Active Substance: QUETIAPINE
     Indication: PRODUCT USED FOR UNKNOWN INDICATION
     Dosage: 50 MILLIGRAM, QD (USUAL TREATMENT)
     Route: 064
     Dates: end: 20180516
  2. VENLAFAXINE [Suspect]
     Active Substance: VENLAFAXINE HYDROCHLORIDE
     Indication: PRODUCT USED FOR UNKNOWN INDICATION
     Dosage: 225 MILLIGRAM, QD
     Route: 064
     Dates: end: 20180516
  3. TRAMADOL. [Suspect]
     Active Substance: TRAMADOL
     Indication: PRODUCT USED FOR UNKNOWN INDICATION
     Dosage: 1 DOSAGE FORM, PRN (POSOLOGIE INCONNUE. ; AS NECESSARY)
     Route: 064
  4. DALMADORM [Suspect]
     Active Substance: FLURAZEPAM HYDROCHLORIDE
     Indication: PRODUCT USED FOR UNKNOWN INDICATION
     Dosage: 15 MILLIGRAM, QD (USUAL TREATMENT)
     Route: 064
  5. XANAX [Suspect]
     Active Substance: ALPRAZOLAM
     Indication: PRODUCT USED FOR UNKNOWN INDICATION
     Dosage: 1 MILLIGRAM, TID (USUAL TREATMENT)
     Route: 064
  6. CAMPRAL [Suspect]
     Active Substance: ACAMPROSATE CALCIUM
     Indication: PRODUCT USED FOR UNKNOWN INDICATION
     Dosage: 600 MILLIGRAM, TID (USUAL TREATMENT)
     Route: 064
  7. QUETIAPINE. [Suspect]
     Active Substance: QUETIAPINE
     Dosage: 30 MILLIGRAM, QD
     Route: 064
     Dates: start: 20180516, end: 20181008
  8. VENLAFAXINE [Suspect]
     Active Substance: VENLAFAXINE HYDROCHLORIDE
     Dosage: 150 MILLIGRAM, QD
     Route: 064
     Dates: start: 20180516, end: 20181008

REACTIONS (6)
  - Premature baby [Fatal]
  - Neonatal respiratory distress syndrome [Fatal]
  - Septum pellucidum agenesis [Not Recovered/Not Resolved]
  - Septo-optic dysplasia [Not Recovered/Not Resolved]
  - Foetal exposure during pregnancy [Recovered/Resolved]
  - Cerebral ventricle dilatation [Not Recovered/Not Resolved]

NARRATIVE: CASE EVENT DATE: 201803
